FAERS Safety Report 10272751 (Version 2)
Quarter: 2014Q3

REPORT INFORMATION
  Report Type: Spontaneous
  Country: US (occurrence: None)
  Receive Date: 20140630
  Receipt Date: 20140711
  Transmission Date: 20150326
  Serious: Yes (Hospitalization)
  Sender: FDA-Public Use
  Company Number: 2014CT000058

PATIENT
  Age: 52 Year
  Sex: Female
  Weight: 89.36 kg

DRUGS (13)
  1. KORLYM [Suspect]
     Active Substance: MIFEPRISTONE
     Indication: CUSHING^S SYNDROME
     Route: 048
     Dates: start: 20140505, end: 20140601
  2. CALCIUM VITAMIN D [Concomitant]
     Active Substance: CALCIUM\VITAMIN D
  3. LANTUS [Concomitant]
     Active Substance: INSULIN GLARGINE
  4. GEMFIBROZIL. [Concomitant]
     Active Substance: GEMFIBROZIL
  5. PRAVASTATIN [Concomitant]
     Active Substance: PRAVASTATIN\PRAVASTATIN SODIUM
  6. AMLODIPINE [Concomitant]
     Active Substance: AMLODIPINE BESYLATE
  7. SPIRONOLACTONE. [Concomitant]
     Active Substance: SPIRONOLACTONE
  8. VITAMIN D2 [Concomitant]
     Active Substance: ERGOCALCIFEROL
  9. PRILOSEC [Concomitant]
     Active Substance: OMEPRAZOLE MAGNESIUM
  10. ASPIRIN. [Concomitant]
     Active Substance: ASPIRIN
  11. NOVOLOG [Concomitant]
     Active Substance: INSULIN ASPART
  12. CARVEDILOL. [Concomitant]
     Active Substance: CARVEDILOL
  13. LOSARTAN [Concomitant]
     Active Substance: LOSARTAN

REACTIONS (13)
  - Fatigue [None]
  - Blood pressure decreased [None]
  - Asthenia [None]
  - Fall [None]
  - Blood glucose decreased [None]
  - Mutism [None]
  - Loss of consciousness [None]
  - Heart rate decreased [None]
  - Blood glucose fluctuation [None]
  - Gout [None]
  - Body temperature decreased [None]
  - Wound haemorrhage [None]
  - Malaise [None]

NARRATIVE: CASE EVENT DATE: 20140509
